FAERS Safety Report 18538139 (Version 1)
Quarter: 2020Q4

REPORT INFORMATION
  Report Type: Spontaneous
  Country: DE (occurrence: DE)
  Receive Date: 20201124
  Receipt Date: 20201124
  Transmission Date: 20210114
  Serious: Yes (Death, Congenital Anomaly)
  Sender: FDA-Public Use
  Company Number: DE-DRREDDYS-GER/GER/20/0129251

PATIENT
  Age: 0 Year
  Sex: Female
  Weight: .15 kg

DRUGS (3)
  1. RAMIPRIL. [Suspect]
     Active Substance: RAMIPRIL
     Indication: PRODUCT USED FOR UNKNOWN INDICATION
     Dosage: 5 [MG/D ]
     Route: 064
     Dates: start: 20190819, end: 20191221
  2. GILENYA [Suspect]
     Active Substance: FINGOLIMOD HYDROCHLORIDE
     Indication: PRODUCT USED FOR UNKNOWN INDICATION
     Dosage: 0.5 [MG/D ]
     Route: 064
     Dates: start: 20190819, end: 20191221
  3. L-THYROXIN 150 [Concomitant]
     Indication: PRODUCT USED FOR UNKNOWN INDICATION
     Dosage: 150 [MICROGRAM/D ]
     Route: 064
     Dates: start: 20190819, end: 20191221

REACTIONS (5)
  - Aortic valve stenosis [Not Recovered/Not Resolved]
  - Foetal exposure during pregnancy [Unknown]
  - Mitral valve atresia [Not Recovered/Not Resolved]
  - Hypoplastic left heart syndrome [Fatal]
  - Bicuspid aortic valve [Not Recovered/Not Resolved]
